FAERS Safety Report 22320079 (Version 2)
Quarter: 2023Q2

REPORT INFORMATION
  Report Type: Spontaneous
  Country: ES (occurrence: ES)
  Receive Date: 20230515
  Receipt Date: 20230522
  Transmission Date: 20230722
  Serious: Yes (Other)
  Sender: FDA-Public Use
  Company Number: ES-009507513-2305ESP003693

PATIENT
  Age: 57 Year
  Sex: Male
  Weight: 85 kg

DRUGS (6)
  1. PEMBROLIZUMAB [Suspect]
     Active Substance: PEMBROLIZUMAB
     Indication: Squamous cell carcinoma of lung
     Dosage: 200 MILLIGRAM, Q3W. C1D1
     Dates: start: 20180517, end: 20180517
  2. PEMBROLIZUMAB [Suspect]
     Active Substance: PEMBROLIZUMAB
     Dosage: 200 MILLIGRAM, Q3W. C4D1
     Dates: start: 201807, end: 201807
  3. PEMBROLIZUMAB [Suspect]
     Active Substance: PEMBROLIZUMAB
     Dosage: 200 MILLIGRAM, Q3W. C9D1
     Dates: start: 2018, end: 2018
  4. PEMBROLIZUMAB [Suspect]
     Active Substance: PEMBROLIZUMAB
     Dosage: 200 MILLIGRAM, Q3W. C15D1
     Dates: start: 201810, end: 201810
  5. PEMBROLIZUMAB [Suspect]
     Active Substance: PEMBROLIZUMAB
     Dosage: 200 MILLIGRAM, Q3W. C35D1
     Dates: start: 20020520, end: 20200520
  6. PEMBROLIZUMAB [Suspect]
     Active Substance: PEMBROLIZUMAB
     Dosage: MONOTHERAPY

REACTIONS (6)
  - Non-small cell lung cancer recurrent [Unknown]
  - Inflammatory bowel disease [Unknown]
  - Hypothyroidism [Unknown]
  - Osteitis [Unknown]
  - Musculoskeletal pain [Unknown]
  - Colitis [Unknown]

NARRATIVE: CASE EVENT DATE: 20181001
